FAERS Safety Report 21652722 (Version 1)
Quarter: 2022Q4

REPORT INFORMATION
  Report Type: Spontaneous
  Country: US (occurrence: None)
  Receive Date: 20221126
  Receipt Date: 20221126
  Transmission Date: 20230112
  Serious: Yes (Death)
  Sender: FDA-Public Use
  Company Number: None

PATIENT
  Age: 83 Year
  Sex: Female

DRUGS (1)
  1. CREON [Suspect]
     Active Substance: PANCRELIPASE AMYLASE\PANCRELIPASE LIPASE\PANCRELIPASE PROTEASE
     Indication: Pancreatic failure
     Dosage: OTHER QUANTITY : 24,000 U;?FREQUENCY : 3 TIMES A DAY;?
     Route: 048
     Dates: start: 20221115, end: 20221125

REACTIONS (1)
  - Death [None]

NARRATIVE: CASE EVENT DATE: 20221125
